FAERS Safety Report 5363789-3 (Version None)
Quarter: 2007Q2

REPORT INFORMATION
  Report Type: 
  Country: None (occurrence: None)
  Receive Date: 20070620
  Receipt Date: 20070608
  Transmission Date: 20071010
  Serious: Yes (Disabling)
  Sender: FDA-Public Use
  Company Number: US-MERCK-0501USA03756

PATIENT
  Age: 40 Year
  Sex: Male
  Weight: 102 kg

DRUGS (3)
  1. ZOCOR [Suspect]
     Indication: HYPERTENSION
     Route: 048
     Dates: start: 20010101
  2. LIPITOR [Suspect]
     Indication: BLOOD CHOLESTEROL INCREASED
     Route: 065
     Dates: start: 19990101
  3. ACCUPRIL [Concomitant]
     Route: 065

REACTIONS (8)
  - AMYOTROPHIC LATERAL SCLEROSIS [None]
  - ASTHENIA [None]
  - BALANCE DISORDER [None]
  - BLOOD CREATINE PHOSPHOKINASE INCREASED [None]
  - ELECTROMYOGRAM ABNORMAL [None]
  - FALL [None]
  - GAIT SPASTIC [None]
  - MUSCLE SPASMS [None]
